FAERS Safety Report 18552117 (Version 1)
Quarter: 2020Q4

REPORT INFORMATION
  Report Type: Spontaneous
  Country: US (occurrence: US)
  Receive Date: 20201126
  Receipt Date: 20201126
  Transmission Date: 20210114
  Serious: Yes (Death)
  Sender: FDA-Public Use
  Company Number: US-BLUEPRINT MEDICINES CORPORATION-SP-US-2020-001241

PATIENT
  Sex: Male

DRUGS (2)
  1. GAVRETO [Suspect]
     Active Substance: PRALSETINIB
     Indication: NON-SMALL CELL LUNG CANCER
     Route: 048
  2. GAVRETO [Suspect]
     Active Substance: PRALSETINIB
     Route: 048
     Dates: start: 20201107

REACTIONS (1)
  - Death [Fatal]

NARRATIVE: CASE EVENT DATE: 20201118
